FAERS Safety Report 11005149 (Version 6)
Quarter: 2015Q4

REPORT INFORMATION
  Report Type: Spontaneous
  Country: AU (occurrence: AU)
  Receive Date: 20150409
  Receipt Date: 20151008
  Transmission Date: 20160304
  Serious: Yes (Hospitalization, Other)
  Sender: FDA-Public Use
  Company Number: AU-ALEXION-A201403058

PATIENT

DRUGS (3)
  1. SOLIRIS [Suspect]
     Active Substance: ECULIZUMAB
     Indication: PAROXYSMAL NOCTURNAL HAEMOGLOBINURIA
     Dosage: 900 MG, Q2W
     Route: 042
     Dates: start: 201105
  2. LYRICA [Suspect]
     Active Substance: PREGABALIN
     Indication: NEURALGIA
     Dosage: 25 MG, QD
     Route: 048
     Dates: start: 20140726
  3. ANTIBIOTICS [Concomitant]
     Active Substance: UNSPECIFIED INGREDIENT
     Indication: PRODUCT USED FOR UNKNOWN INDICATION
     Dosage: UNK
     Route: 048

REACTIONS (24)
  - Back pain [Recovered/Resolved]
  - Musculoskeletal stiffness [Recovered/Resolved]
  - Neuralgia [Recovering/Resolving]
  - Chest pain [Recovering/Resolving]
  - Oropharyngeal pain [Recovering/Resolving]
  - Respiratory syncytial virus infection [Recovered/Resolved]
  - Febrile infection [Recovered/Resolved]
  - Nausea [Recovered/Resolved]
  - Cough [Recovering/Resolving]
  - Neutropenia [Recovering/Resolving]
  - Headache [Recovering/Resolving]
  - Spinal pain [Recovering/Resolving]
  - Sinusitis [Recovered/Resolved]
  - Headache [Recovering/Resolving]
  - Haemoglobin decreased [Recovering/Resolving]
  - Viral upper respiratory tract infection [Recovering/Resolving]
  - Chromaturia [Recovered/Resolved]
  - Vertigo positional [Recovered/Resolved]
  - Abdominal pain [Recovering/Resolving]
  - Neuralgia [Recovered/Resolved]
  - Pain in extremity [Recovering/Resolving]
  - Dehydration [Recovered/Resolved]
  - Rhinorrhoea [Recovering/Resolving]
  - Musculoskeletal pain [Recovering/Resolving]

NARRATIVE: CASE EVENT DATE: 20140726
